FAERS Safety Report 7817041-4 (Version None)
Quarter: 2011Q4

REPORT INFORMATION
  Report Type: 
  Country: None (occurrence: None)
  Receive Date: 20111017
  Receipt Date: 20111005
  Transmission Date: 20120403
  Serious: Yes (Other)
  Sender: FDA-Public Use
  Company Number: JP-SANOFI-AVENTIS-2011SA066488

PATIENT

DRUGS (2)
  1. DOCETAXEL [Suspect]
     Route: 065
  2. ALL OTHER THERAPEUTIC PRODUCTS [Suspect]
     Route: 065

REACTIONS (8)
  - HYPERURICAEMIA [None]
  - HYPERSENSITIVITY [None]
  - URINARY RETENTION [None]
  - NEUTROPENIA [None]
  - CONSTIPATION [None]
  - INTERSTITIAL LUNG DISEASE [None]
  - FEBRILE NEUTROPENIA [None]
  - LEUKOPENIA [None]
